FAERS Safety Report 6300005-X (Version None)
Quarter: 2009Q3

REPORT INFORMATION
  Report Type: 
  Country: None (occurrence: None)
  Receive Date: 20090806
  Receipt Date: 20090728
  Transmission Date: 20100115
  Serious: Yes (Other)
  Sender: FDA-Public Use
  Company Number: US-ELI_LILLY_AND_COMPANY-US200907006810

PATIENT
  Age: 74 Year
  Sex: Female

DRUGS (3)
  1. EVISTA [Suspect]
     Indication: OSTEOPOROSIS
     Dosage: UNK, UNKNOWN
     Route: 065
     Dates: start: 20090401, end: 20090723
  2. CALCIUM WITH VITAMIN D [Concomitant]
     Dosage: UNK, UNKNOWN
     Route: 065
  3. MAGNESIUM [Concomitant]
     Dosage: UNK, UNKNOWN
     Route: 065

REACTIONS (4)
  - DYSPNOEA [None]
  - PAIN IN EXTREMITY [None]
  - RASH GENERALISED [None]
  - THROMBOSIS [None]
